FAERS Safety Report 6816498-5 (Version None)
Quarter: 2010Q3

REPORT INFORMATION
  Report Type: 
  Country: None (occurrence: None)
  Receive Date: 20100705
  Receipt Date: 20100624
  Transmission Date: 20110219
  Serious: Yes (Hospitalization)
  Sender: FDA-Public Use
  Company Number: JP-SANOFI-AVENTIS-2010SA035884

PATIENT
  Age: 68 Year
  Sex: Male
  Weight: 59 kg

DRUGS (20)
  1. ELPLAT [Suspect]
     Indication: GASTRIC CANCER
     Route: 041
     Dates: start: 20100507, end: 20100507
  2. ELPLAT [Suspect]
     Route: 041
     Dates: start: 20100528, end: 20100528
  3. TS-1 [Suspect]
     Indication: GASTRIC CANCER
     Route: 048
     Dates: start: 20100507
  4. TS-1 [Suspect]
     Dates: start: 20100528
  5. CALONAL [Concomitant]
     Indication: CANCER PAIN
     Route: 048
     Dates: start: 20100420
  6. OXYCONTIN [Concomitant]
     Indication: CANCER PAIN
     Route: 048
     Dates: start: 20100430
  7. OPSO DAINIPPON [Concomitant]
     Indication: CANCER PAIN
     Route: 048
     Dates: start: 20100610
  8. CRAVIT [Concomitant]
     Indication: CHOLANGITIS
     Route: 048
     Dates: start: 20100611
  9. NOVAMIN [Concomitant]
     Indication: NAUSEA
     Route: 048
     Dates: start: 20100430
  10. NAUZELIN [Concomitant]
     Indication: NAUSEA
     Route: 048
     Dates: start: 20100415
  11. VEEN-F [Concomitant]
     Route: 042
     Dates: start: 20100615
  12. CEFAZOLIN SODIUM [Concomitant]
     Route: 042
     Dates: start: 20100617
  13. OMEPRAL [Concomitant]
     Dosage: 10-20 MG
     Route: 042
     Dates: start: 20100617, end: 20100618
  14. ELECTROLYTE SOLUTIONS [Concomitant]
     Route: 042
     Dates: start: 20100617, end: 20100618
  15. VEEN D [Concomitant]
     Dosage: 500-1000ML
     Route: 042
     Dates: start: 20100618
  16. FENTANYL [Concomitant]
     Route: 042
     Dates: start: 20100618
  17. ULTIVA [Concomitant]
     Route: 042
  18. NEOLAMIN 3B INJ. [Concomitant]
     Route: 042
     Dates: start: 20100618
  19. ADONA [Concomitant]
     Route: 042
     Dates: start: 20100618
  20. TRANSAMIN [Concomitant]
     Route: 042
     Dates: start: 20100618

REACTIONS (1)
  - SHOCK HAEMORRHAGIC [None]
